FAERS Safety Report 11832473 (Version 2)
Quarter: 2015Q4

REPORT INFORMATION
  Report Type: Spontaneous
  Country: US (occurrence: US)
  Receive Date: 20151214
  Receipt Date: 20151218
  Transmission Date: 20160305
  Serious: No
  Sender: FDA-Public Use
  Company Number: US-TAKEDA-2015TEU010275

PATIENT
  Age: 62 Year
  Sex: Male
  Weight: 88.45 kg

DRUGS (10)
  1. TUMS                               /00193601/ [Suspect]
     Active Substance: CALCIUM CARBONATE\MAGNESIUM CARBONATE\MAGNESIUM TRISILICATE
     Indication: GASTROOESOPHAGEAL REFLUX DISEASE
     Dosage: 1 TABLET AS NEEDED, UNK
     Route: 048
  2. DEXILANT [Suspect]
     Active Substance: DEXLANSOPRAZOLE
     Indication: DYSPEPSIA
     Dosage: 60 MG, QD
     Route: 048
     Dates: start: 20151016, end: 201511
  3. PANTOPRAZOLE [Suspect]
     Active Substance: PANTOPRAZOLE SODIUM
     Indication: DYSPEPSIA
     Dosage: 40 MG, QD
     Route: 048
  4. PANTOPRAZOLE [Suspect]
     Active Substance: PANTOPRAZOLE SODIUM
     Indication: ABDOMINAL DISTENSION
  5. PANTOPRAZOLE [Suspect]
     Active Substance: PANTOPRAZOLE SODIUM
     Indication: REGURGITATION
  6. TAMSULOSIN [Concomitant]
     Active Substance: TAMSULOSIN
     Indication: NEPHROLITHIASIS
     Dosage: 0.4 MG, QD
     Dates: start: 2014
  7. DEXILANT [Suspect]
     Active Substance: DEXLANSOPRAZOLE
     Indication: ABDOMINAL DISTENSION
  8. DEXILANT [Suspect]
     Active Substance: DEXLANSOPRAZOLE
     Indication: DYSPHAGIA
  9. DEXILANT [Suspect]
     Active Substance: DEXLANSOPRAZOLE
     Indication: REGURGITATION
  10. PANTOPRAZOLE [Suspect]
     Active Substance: PANTOPRAZOLE SODIUM
     Indication: DYSPHAGIA

REACTIONS (8)
  - Drug ineffective [Unknown]
  - Nausea [Recovering/Resolving]
  - Eating disorder [Recovering/Resolving]
  - Pain [Recovering/Resolving]
  - Abdominal pain upper [Recovering/Resolving]
  - Abdominal distension [Recovering/Resolving]
  - Flatulence [Unknown]
  - Drug administration error [Unknown]

NARRATIVE: CASE EVENT DATE: 201510
